FAERS Safety Report 25617831 (Version 1)
Quarter: 2025Q3

REPORT INFORMATION
  Report Type: Spontaneous
  Country: CA (occurrence: CA)
  Receive Date: 20250729
  Receipt Date: 20250729
  Transmission Date: 20251020
  Serious: Yes (Other)
  Sender: ASTELLAS
  Company Number: CA-ASTELLAS-2025-AER-040018

PATIENT
  Age: 36 Year
  Sex: Female

DRUGS (10)
  1. TACROLIMUS [Suspect]
     Active Substance: TACROLIMUS
     Indication: Renal transplant
     Route: 065
  2. TACROLIMUS [Suspect]
     Active Substance: TACROLIMUS
     Route: 065
  3. TACROLIMUS [Suspect]
     Active Substance: TACROLIMUS
     Route: 065
  4. AZATHIOPRINE [Concomitant]
     Active Substance: AZATHIOPRINE
     Indication: Renal transplant
     Route: 065
  5. ASPIRIN [Concomitant]
     Active Substance: ASPIRIN
     Indication: Prophylaxis
     Dosage: PRESCRIBED AT 8 WEEKS GESTATIONAL AGE
     Route: 065
  6. LABETALOL [Concomitant]
     Active Substance: LABETALOL
     Indication: Blood pressure measurement
     Route: 065
  7. LABETALOL [Concomitant]
     Active Substance: LABETALOL
     Route: 065
  8. ECULIZUMAB [Concomitant]
     Active Substance: ECULIZUMAB
     Indication: Atypical haemolytic uraemic syndrome
     Route: 042
  9. ECULIZUMAB [Concomitant]
     Active Substance: ECULIZUMAB
     Dosage: FOR 2 WEEKS
     Route: 042
  10. ECULIZUMAB [Concomitant]
     Active Substance: ECULIZUMAB
     Dosage: THEREAFTER AS MAINTENANCE THERAPY, CONTINUED THROUGHOUT ?PREGNANCY
     Route: 042

REACTIONS (1)
  - Toxicity to various agents [Recovering/Resolving]
